FAERS Safety Report 6509920-5 (Version None)
Quarter: 2009Q4

REPORT INFORMATION
  Report Type: 
  Country: None (occurrence: None)
  Receive Date: 20091222
  Receipt Date: 20091211
  Transmission Date: 20100525
  Serious: Yes (Other)
  Sender: FDA-Public Use
  Company Number: PHHY2009BR55150

PATIENT
  Age: 65 Year
  Sex: Female
  Weight: 56 kg

DRUGS (2)
  1. ZOMETA [Suspect]
     Indication: METASTASES TO BONE
     Dosage: 1 APPLICATION PER MONTH
  2. CHEMOTHERAPEUTICS NOS [Concomitant]
     Dosage: UNK

REACTIONS (24)
  - ABDOMINAL PAIN [None]
  - ACTIVITIES OF DAILY LIVING IMPAIRED [None]
  - ARTHRALGIA [None]
  - BONE DENSITY DECREASED [None]
  - BONE LESION [None]
  - BONE PAIN [None]
  - DIVERTICULUM INTESTINAL [None]
  - DYSPNOEA [None]
  - EAR PAIN [None]
  - EYE PAIN [None]
  - GAIT DISTURBANCE [None]
  - GINGIVAL ABSCESS [None]
  - GINGIVAL BLEEDING [None]
  - GINGIVAL SWELLING [None]
  - HEADACHE [None]
  - LOOSE TOOTH [None]
  - PAIN [None]
  - PAIN IN JAW [None]
  - RADIOTHERAPY [None]
  - SECRETION DISCHARGE [None]
  - SENSORY DISTURBANCE [None]
  - TOOTH DISORDER [None]
  - TOOTH LOSS [None]
  - TORTICOLLIS [None]
